FAERS Safety Report 4714135-7 (Version None)
Quarter: 2005Q3

REPORT INFORMATION
  Report Type: 
  Country: None (occurrence: None)
  Receive Date: 20050701
  Receipt Date: 20040917
  Transmission Date: 20060218
  Serious: Yes (Other)
  Sender: FDA-Public Use
  Company Number: 2004059876

PATIENT
  Age: 51 Year
  Sex: Male

DRUGS (4)
  1. ZOLOFT [Suspect]
     Indication: DEPRESSION
     Dosage: 100 MG (1 IN 1 D),
     Dates: start: 20040712, end: 20040821
  2. NAPROXEN [Concomitant]
  3. CELECOXIB (CELECOXIB) [Concomitant]
  4. ACETAMINOPHEN [Concomitant]

REACTIONS (3)
  - DISCOMFORT [None]
  - PRIAPISM [None]
  - SELF ESTEEM DECREASED [None]
